FAERS Safety Report 4734046-0 (Version None)
Quarter: 2005Q3

REPORT INFORMATION
  Report Type: 
  Country: None (occurrence: None)
  Receive Date: 20050801
  Receipt Date: 20040924
  Transmission Date: 20060218
  Serious: Yes (Death)
  Sender: FDA-Public Use
  Company Number: 209324

PATIENT
  Sex: Female

DRUGS (3)
  1. HERCEPTIN [Suspect]
     Indication: BREAST CANCER
     Dosage: UNK, UNK, INTRAVENOUS
     Route: 042
  2. TAMOXIFEN CITRATE [Concomitant]
  3. NAVELBINE [Concomitant]

REACTIONS (1)
  - METASTASES TO CENTRAL NERVOUS SYSTEM [None]
